FAERS Safety Report 25834789 (Version 1)
Quarter: 2025Q3

REPORT INFORMATION
  Report Type: Spontaneous
  Country: GB (occurrence: GB)
  Receive Date: 20250923
  Receipt Date: 20250923
  Transmission Date: 20251021
  Serious: Yes (Other)
  Sender: TEVA
  Company Number: GB-MHRA-TPP52766920C24388785YC1758543840720

PATIENT
  Age: 59 Year
  Sex: Female
  Weight: 89 kg

DRUGS (16)
  1. NAPROXEN [Suspect]
     Active Substance: NAPROXEN
     Indication: Ill-defined disorder
     Route: 065
     Dates: start: 20250922
  2. CLOBETASOL [Concomitant]
     Active Substance: CLOBETASOL
     Indication: Ill-defined disorder
     Dates: start: 20250922
  3. MOUNJARO [Concomitant]
     Active Substance: TIRZEPATIDE
     Indication: Ill-defined disorder
     Dates: start: 20250903
  4. LACTULOSE [Concomitant]
     Active Substance: LACTULOSE
     Indication: Ill-defined disorder
     Dosage: ONE SACHET DAILY
     Dates: start: 20250725
  5. PREDNISOLONE [Concomitant]
     Active Substance: PREDNISOLONE
     Indication: Ill-defined disorder
     Dates: start: 20250915, end: 20250920
  6. VENLAFAXINE [Concomitant]
     Active Substance: VENLAFAXINE HYDROCHLORIDE
     Indication: Ill-defined disorder
     Dates: start: 20250515
  7. COCODAMOL [Concomitant]
     Active Substance: ACETAMINOPHEN\CODEINE PHOSPHATE
     Indication: Ill-defined disorder
     Dates: start: 20250515
  8. ATORVASTATIN [Concomitant]
     Active Substance: ATORVASTATIN
     Indication: Blood cholesterol decreased
     Dosage: EVENING
     Dates: start: 20250515
  9. GABAPENTIN [Concomitant]
     Active Substance: GABAPENTIN
     Indication: Ill-defined disorder
     Dates: start: 20250515
  10. NAPROXEN [Concomitant]
     Active Substance: NAPROXEN
     Indication: Ill-defined disorder
     Dosage: WITH FOOD
     Dates: start: 20250515, end: 20250909
  11. LEVOTHYROXINE [Concomitant]
     Active Substance: LEVOTHYROXINE
     Indication: Ill-defined disorder
     Dosage: EACH MORNING
     Dates: start: 20250407
  12. BISACODYL [Concomitant]
     Active Substance: BISACODYL
     Indication: Ill-defined disorder
     Dates: start: 20250515
  13. UNIROID [Concomitant]
     Indication: Ill-defined disorder
     Dates: start: 20250624, end: 20250630
  14. EZETIMIBE [Concomitant]
     Active Substance: EZETIMIBE
     Indication: Ill-defined disorder
     Dates: start: 20250801
  15. TIRZEPATIDE [Concomitant]
     Active Substance: TIRZEPATIDE
     Indication: Ill-defined disorder
     Dates: start: 20250825
  16. OMEPRAZOLE [Concomitant]
     Active Substance: OMEPRAZOLE
     Indication: Ill-defined disorder
     Dosage: WHILE ON NAPROXEN
     Dates: start: 20250515

REACTIONS (1)
  - Blister [Recovered/Resolved]

NARRATIVE: CASE EVENT DATE: 20250922
